FAERS Safety Report 7474717-9 (Version None)
Quarter: 2011Q1

REPORT INFORMATION
  Report Type: 
  Country: None (occurrence: None)
  Receive Date: 20110302
  Receipt Date: 20100917
  Transmission Date: 20110831
  Serious: Yes (Hospitalization)
  Sender: FDA-Public Use
  Company Number: 163-21880-10050318

PATIENT
  Age: 83 Year
  Sex: Male

DRUGS (4)
  1. REVLIMID [Suspect]
  2. LORATADINE [Concomitant]
  3. REVLIMID [Suspect]
     Indication: MULTIPLE MYELOMA
     Dosage: 25 MG, DAYS 1-21 THEN 7 DAYS OFF, PO; 15 MG, 1 IN 1 D, PO
     Route: 048
     Dates: start: 20100201
  4. REVLIMID [Suspect]
     Indication: MULTIPLE MYELOMA
     Dosage: 25 MG, DAYS 1-21 THEN 7 DAYS OFF, PO; 15 MG, 1 IN 1 D, PO
     Route: 048
     Dates: start: 20091125

REACTIONS (4)
  - ATRIAL FIBRILLATION [None]
  - DRY THROAT [None]
  - NIGHT SWEATS [None]
  - COUGH [None]
